FAERS Safety Report 23999898 (Version 2)
Quarter: 2024Q2

REPORT INFORMATION
  Report Type: Report from Study
  Country: DE (occurrence: DE)
  Receive Date: 20240621
  Receipt Date: 20240627
  Transmission Date: 20240716
  Serious: Yes (Hospitalization, Other)
  Sender: FDA-Public Use
  Company Number: DE-PFM-2024-03563

PATIENT
  Age: 62 Year
  Sex: Female
  Weight: 57 kg

DRUGS (7)
  1. ENCORAFENIB [Suspect]
     Active Substance: ENCORAFENIB
     Indication: Malignant melanoma
     Dosage: 450 MG, QD (1/DAY)
     Route: 048
     Dates: start: 20230821, end: 20230908
  2. ENCORAFENIB [Suspect]
     Active Substance: ENCORAFENIB
     Dosage: 300 MG, QD (1/DAY)
     Route: 048
     Dates: start: 20230926
  3. ENCORAFENIB [Suspect]
     Active Substance: ENCORAFENIB
     Dosage: 450 MG, QD (1/DAY)
     Route: 048
     Dates: start: 20231227
  4. BINIMETINIB [Suspect]
     Active Substance: BINIMETINIB
     Indication: Malignant melanoma
     Dosage: 45 MG, BID (2/DAY)
     Route: 048
     Dates: start: 20230821, end: 20230908
  5. BINIMETINIB [Suspect]
     Active Substance: BINIMETINIB
     Dosage: 30 MG, BID (2/DAY)
     Route: 048
     Dates: start: 20230926
  6. BINIMETINIB [Suspect]
     Active Substance: BINIMETINIB
     Dosage: 45 MG, BID (2/DAY)
     Route: 048
     Dates: start: 20231227
  7. LEVOTHYROXINE SODIUM [Concomitant]
     Active Substance: LEVOTHYROXINE SODIUM
     Dosage: UNK
     Route: 065

REACTIONS (1)
  - Leukoencephalopathy [Recovering/Resolving]

NARRATIVE: CASE EVENT DATE: 20240417
